FAERS Safety Report 6377275-5 (Version None)
Quarter: 2009Q3

REPORT INFORMATION
  Report Type: 
  Country: None (occurrence: None)
  Receive Date: 20090924
  Receipt Date: 20090924
  Transmission Date: 20100115
  Serious: No
  Sender: FDA-Public Use
  Company Number: None

PATIENT
  Age: 52 Year
  Sex: Male
  Weight: 76.6 kg

DRUGS (1)
  1. ENALAPRIL MALEATE [Suspect]
     Dosage: 5 MG BID PO
     Route: 048
     Dates: start: 20090815, end: 20090816

REACTIONS (3)
  - ANGIOEDEMA [None]
  - LIP SWELLING [None]
  - SWELLING FACE [None]
